FAERS Safety Report 5242953-8 (Version None)
Quarter: 2007Q1

REPORT INFORMATION
  Report Type: 
  Country: None (occurrence: None)
  Receive Date: 20070215
  Receipt Date: 20070201
  Transmission Date: 20070707
  Serious: No
  Sender: FDA-Public Use
  Company Number: MC200700101

PATIENT
  Age: 74 Year
  Sex: Female

DRUGS (3)
  1. ANGIOMAX [Suspect]
     Indication: PERCUTANEOUS CORONARY INTERVENTION
     Dosage: 0.75 MG/KG, BOLUS, IV BOLUS ; 1.75 MG/KG, HR, INTRAVENOUS
     Route: 040
  2. PLAVIX /01220701/ (CLOPIDOGREL) ORAL DRUG UNSPECIFIED FORM [Concomitant]
  3. INTEGRILIN [Concomitant]

REACTIONS (6)
  - CHEST PAIN [None]
  - CORONARY ARTERY DISSECTION [None]
  - DRUG INTOLERANCE [None]
  - IATROGENIC INJURY [None]
  - NAUSEA [None]
  - PROCEDURAL COMPLICATION [None]
